FAERS Safety Report 12830275 (Version 1)
Quarter: 2016Q4

REPORT INFORMATION
  Report Type: Spontaneous
  Country: US (occurrence: US)
  Receive Date: 20161007
  Receipt Date: 20161007
  Transmission Date: 20170207
  Serious: No
  Sender: FDA-Public Use
  Company Number: US-SA-2016SA163148

PATIENT
  Age: 65 Year
  Sex: Male

DRUGS (4)
  1. AUBAGIO [Suspect]
     Active Substance: TERIFLUNOMIDE
     Indication: MULTIPLE SCLEROSIS
     Route: 048
     Dates: start: 201506
  2. DIOVAN [Concomitant]
     Active Substance: VALSARTAN
  3. ALLOPURINOL. [Concomitant]
     Active Substance: ALLOPURINOL
  4. VALIUM [Concomitant]
     Active Substance: DIAZEPAM

REACTIONS (3)
  - Dysphagia [Unknown]
  - Choking sensation [Unknown]
  - Vomiting [Unknown]

NARRATIVE: CASE EVENT DATE: 2015
